FAERS Safety Report 10505046 (Version 1)
Quarter: 2014Q4

REPORT INFORMATION
  Report Type: Report from Study
  Country: US (occurrence: US)
  Receive Date: 20141008
  Receipt Date: 20141008
  Transmission Date: 20150528
  Serious: Yes (Other)
  Sender: FDA-Public Use
  Company Number: US-SA-2014SA135758

PATIENT
  Age: 67 Year
  Sex: Female

DRUGS (2)
  1. INSULIN [Concomitant]
     Active Substance: INSULIN NOS
  2. LANTUS [Suspect]
     Active Substance: INSULIN GLARGINE
     Indication: DIABETES MELLITUS
     Dosage: DOSE- 34U AM AND 32U PM?THERAPY START DATE- 10 OR 15 YEARS
     Route: 065

REACTIONS (2)
  - Off label use [Unknown]
  - Renal disorder [Not Recovered/Not Resolved]
